FAERS Safety Report 24736039 (Version 1)
Quarter: 2024Q4

REPORT INFORMATION
  Report Type: Spontaneous
  Country: US (occurrence: US)
  Receive Date: 20241216
  Receipt Date: 20241216
  Transmission Date: 20250114
  Serious: Yes (Other)
  Sender: Haleon PLC
  Company Number: US-HALEON-2214830

PATIENT
  Age: 55 Year
  Sex: Male

DRUGS (4)
  1. FLUTICASONE [Suspect]
     Active Substance: FLUTICASONE
     Indication: Product used for unknown indication
     Dosage: ROUTE REPORTED AS INTRANASAL
     Route: 045
  2. PREZCOBIX [Suspect]
     Active Substance: COBICISTAT\DARUNAVIR ETHANOLATE
     Indication: Product used for unknown indication
  3. FLUTICASONE [Suspect]
     Active Substance: FLUTICASONE
     Indication: Product used for unknown indication
     Dosage: INHALED FLUTICASONE
     Route: 055
  4. HYDROCORTISONE [Concomitant]
     Active Substance: HYDROCORTISONE
     Indication: Adrenal insufficiency
     Dosage: 15MG PO DAILY AT 8AM AND 5MG DAILY AT 2PM
     Route: 048

REACTIONS (6)
  - Cushing^s syndrome [Unknown]
  - Contusion [Unknown]
  - Weight loss poor [Unknown]
  - Overweight [Unknown]
  - Cushingoid [Unknown]
  - Central obesity [Unknown]
